FAERS Safety Report 4700088-4 (Version None)
Quarter: 2005Q2

REPORT INFORMATION
  Report Type: 
  Country: None (occurrence: None)
  Receive Date: 20050623
  Receipt Date: 20050609
  Transmission Date: 20051028
  Serious: Yes (Hospitalization, Other)
  Sender: FDA-Public Use
  Company Number: 200413108BCC

PATIENT
  Sex: Male

DRUGS (4)
  1. ALEVE [Suspect]
     Indication: DEMENTIA ALZHEIMER'S TYPE
     Dosage: BID, ORAL
     Route: 048
     Dates: start: 20030701, end: 20040506
  2. ALEVE [Suspect]
     Indication: PROPHYLAXIS
     Dosage: BID, ORAL
     Route: 048
     Dates: start: 20030701, end: 20040506
  3. ASPIRIN [Concomitant]
  4. CALCIUM GLUCONATE [Concomitant]

REACTIONS (8)
  - ANOREXIA [None]
  - ATRIAL FIBRILLATION [None]
  - DEEP VEIN THROMBOSIS [None]
  - DIVERTICULAR PERFORATION [None]
  - DIZZINESS [None]
  - INTESTINAL OBSTRUCTION [None]
  - LOBAR PNEUMONIA [None]
  - PULMONARY EMBOLISM [None]
